FAERS Safety Report 6838974-1 (Version None)
Quarter: 2010Q3

REPORT INFORMATION
  Report Type: 
  Country: None (occurrence: None)
  Receive Date: 20100713
  Receipt Date: 20080331
  Transmission Date: 20110219
  Serious: No
  Sender: FDA-Public Use
  Company Number: US-PFIZER INC-2007049447

PATIENT
  Sex: Male
  Weight: 81.6 kg

DRUGS (4)
  1. CHANTIX [Suspect]
     Indication: NICOTINE DEPENDENCE
     Dates: start: 20060808
  2. EQUATE [Concomitant]
  3. SALBUTAMOL [Concomitant]
  4. TYLENOL [Concomitant]

REACTIONS (6)
  - ABDOMINAL DISCOMFORT [None]
  - DEPRESSION [None]
  - INSOMNIA [None]
  - MALAISE [None]
  - NAUSEA [None]
  - SLEEP DISORDER [None]
